FAERS Safety Report 6874971-8 (Version None)
Quarter: 2010Q3

REPORT INFORMATION
  Report Type: 
  Country: None (occurrence: None)
  Receive Date: 20100723
  Receipt Date: 20100709
  Transmission Date: 20110219
  Serious: Yes (Other)
  Sender: FDA-Public Use
  Company Number: 1000013222

PATIENT
  Age: 34 Year
  Sex: Female
  Weight: 67 kg

DRUGS (2)
  1. ESCITALOPRAM [Suspect]
     Indication: DEPRESSION
     Dosage: 10 MG 910 MG, 1 IN 1 D), ORAL
     Route: 048
     Dates: start: 20090923, end: 20090925
  2. DALACIN [Concomitant]

REACTIONS (13)
  - ANXIETY [None]
  - CONFUSIONAL STATE [None]
  - DEREALISATION [None]
  - DIZZINESS [None]
  - DRY MOUTH [None]
  - HEADACHE [None]
  - INSOMNIA [None]
  - LOSS OF CONSCIOUSNESS [None]
  - MALAISE [None]
  - NAUSEA [None]
  - RESTLESSNESS [None]
  - SYNCOPE [None]
  - TREMOR [None]
